FAERS Safety Report 5408276-9 (Version None)
Quarter: 2007Q3

REPORT INFORMATION
  Report Type: 
  Country: None (occurrence: None)
  Receive Date: 20070806
  Receipt Date: 20070806
  Transmission Date: 20080115
  Serious: Yes (Hospitalization)
  Sender: FDA-Public Use
  Company Number: None

PATIENT
  Age: 49 Year
  Sex: Male

DRUGS (1)
  1. MYCOPHENOLATE MOFETIL [Suspect]
     Indication: SARCOIDOSIS
     Dosage: 1000MG BID PO
     Route: 048
     Dates: start: 20061127

REACTIONS (4)
  - EAR INFECTION [None]
  - IMMUNOSUPPRESSION [None]
  - INFECTION [None]
  - PNEUMONIA [None]
